FAERS Safety Report 7996403-9 (Version None)
Quarter: 2011Q4

REPORT INFORMATION
  Report Type: 
  Country: None (occurrence: None)
  Receive Date: 20111220
  Receipt Date: 20111213
  Transmission Date: 20120403
  Serious: Yes (Other)
  Sender: FDA-Public Use
  Company Number: PHHY2011DK82652

PATIENT
  Sex: Male
  Weight: 67.5 kg

DRUGS (9)
  1. FLUOROURACIL [Suspect]
     Indication: METASTASIS
     Dates: start: 20081231, end: 20090601
  2. EMPERAL [Concomitant]
     Indication: PROPHYLAXIS OF NAUSEA AND VOMITING
  3. MOTILIUM [Concomitant]
     Indication: PROPHYLAXIS OF NAUSEA AND VOMITING
  4. PREDNISOLONE [Concomitant]
     Indication: PROPHYLAXIS OF NAUSEA AND VOMITING
  5. ONDANSETRON [Concomitant]
     Indication: PROPHYLAXIS OF NAUSEA AND VOMITING
  6. OXALIPLATIN [Suspect]
     Indication: METASTASIS
     Route: 065
     Dates: start: 20081231, end: 20090601
  7. LORAZEPAM [Concomitant]
     Indication: PROPHYLAXIS OF NAUSEA AND VOMITING
  8. OXALIPLATIN [Suspect]
     Dosage: 150MG F?RSTE 4 GANGE. 115 MG N?STE 7 GANGE. 0 MG I 12. CYKEL. INTERVAL 14 DAGE. IALT 12 CYKLER
     Dates: start: 20081231, end: 20090601
  9. LEUCOVORIN CALCIUM [Suspect]
     Indication: METASTASIS
     Dates: start: 20081231, end: 20090601

REACTIONS (6)
  - MOTOR DYSFUNCTION [None]
  - POLYNEUROPATHY [None]
  - SENSORY DISTURBANCE [None]
  - BALANCE DISORDER [None]
  - HYPOAESTHESIA [None]
  - COORDINATION ABNORMAL [None]
